FAERS Safety Report 26194622 (Version 1)
Quarter: 2025Q4

REPORT INFORMATION
  Report Type: Spontaneous
  Country: CN (occurrence: CN)
  Receive Date: 20251224
  Receipt Date: 20251224
  Transmission Date: 20260118
  Serious: Yes (Hospitalization)
  Sender: BAYER HEALTHCARE PHARMACEUTICALS INC.
  Company Number: CN-BAYER-2025A168429

PATIENT
  Age: 85 Year
  Sex: Male
  Weight: 50 kg

DRUGS (3)
  1. AVELOX [Suspect]
     Active Substance: MOXIFLOXACIN HYDROCHLORIDE
     Indication: Pulmonary tuberculosis
     Dosage: 0.4 G, QD
     Route: 048
     Dates: start: 20251206, end: 20251212
  2. RIFAMPIN [Concomitant]
     Active Substance: RIFAMPIN
     Indication: Pulmonary tuberculosis
     Dosage: 0.45 G, QD
     Route: 048
     Dates: start: 20251206, end: 20251221
  3. ISONIAZID [Concomitant]
     Active Substance: ISONIAZID
     Indication: Pulmonary tuberculosis
     Dosage: 0.3 G, QD
     Route: 048
     Dates: start: 20251206, end: 20251221

REACTIONS (4)
  - Tremor [Recovering/Resolving]
  - Petit mal epilepsy [Recovered/Resolved]
  - Product prescribing issue [None]
  - Product use in unapproved indication [None]

NARRATIVE: CASE EVENT DATE: 20251206
